FAERS Safety Report 14536126 (Version 2)
Quarter: 2018Q1

REPORT INFORMATION
  Report Type: Spontaneous
  Country: US (occurrence: US)
  Receive Date: 20180215
  Receipt Date: 20180321
  Transmission Date: 20180509
  Serious: Yes (Other)
  Sender: FDA-Public Use
  Company Number: US-RADIUS HEALTH INC.-2018US000059

PATIENT
  Sex: Female
  Weight: 62.59 kg

DRUGS (1)
  1. TYMLOS [Suspect]
     Active Substance: ABALOPARATIDE
     Indication: OSTEOPOROSIS POSTMENOPAUSAL
     Dosage: 80 MCG, DAILY
     Route: 058
     Dates: start: 201712

REACTIONS (5)
  - Anaphylactic reaction [Unknown]
  - Dizziness [Unknown]
  - Muscle spasms [Unknown]
  - Bone pain [Unknown]
  - Chest discomfort [Unknown]
